FAERS Safety Report 4892174-3 (Version None)
Quarter: 2006Q1

REPORT INFORMATION
  Report Type: 
  Country: None (occurrence: None)
  Receive Date: 20060126
  Receipt Date: 20051024
  Transmission Date: 20060701
  Serious: Yes (Hospitalization)
  Sender: FDA-Public Use
  Company Number: NL-AMGEN-US155519

PATIENT
  Sex: Female

DRUGS (6)
  1. ETANERCEPT [Suspect]
     Indication: ANKYLOSING SPONDYLITIS
     Route: 058
     Dates: start: 20020924
  2. METOPROLOL [Concomitant]
  3. CALCIUM GLUCONATE [Concomitant]
  4. ARCOXIA [Concomitant]
  5. ZANTAC [Concomitant]
  6. NADROPARIN CALCIUM [Concomitant]

REACTIONS (5)
  - ABDOMINAL PAIN [None]
  - CONSTIPATION [None]
  - MALNUTRITION [None]
  - MICROCYTIC ANAEMIA [None]
  - WEIGHT DECREASED [None]
